FAERS Safety Report 13558414 (Version 1)
Quarter: 2017Q2

REPORT INFORMATION
  Report Type: Spontaneous
  Country: US (occurrence: US)
  Receive Date: 20170518
  Receipt Date: 20170518
  Transmission Date: 20170830
  Serious: No
  Sender: FDA-Public Use
  Company Number: US-GLAXOSMITHKLINE-US2017071997

PATIENT
  Sex: Male

DRUGS (7)
  1. INCRUSE ELLIPTA [Suspect]
     Active Substance: UMECLIDINIUM BROMIDE
     Indication: ASTHMA
     Dosage: UNK, PRN
     Route: 055
     Dates: end: 20170503
  2. BREO ELLIPTA [Suspect]
     Active Substance: FLUTICASONE FUROATE\VILANTEROL TRIFENATATE
     Indication: BRONCHITIS
  3. INCRUSE ELLIPTA [Suspect]
     Active Substance: UMECLIDINIUM BROMIDE
     Indication: LUNG DISORDER
     Dosage: 1 PUFF(S), QD
     Route: 055
     Dates: start: 20170304
  4. BREO ELLIPTA [Suspect]
     Active Substance: FLUTICASONE FUROATE\VILANTEROL TRIFENATATE
     Indication: LUNG DISORDER
     Dosage: 1 PUFF(S), QD
     Route: 055
     Dates: start: 20170504
  5. BREO ELLIPTA [Suspect]
     Active Substance: FLUTICASONE FUROATE\VILANTEROL TRIFENATATE
     Indication: ASTHMA
  6. INCRUSE ELLIPTA [Suspect]
     Active Substance: UMECLIDINIUM BROMIDE
     Indication: BRONCHITIS
  7. ASPIRIN. [Concomitant]
     Active Substance: ASPIRIN

REACTIONS (9)
  - Drug dispensing error [Unknown]
  - Vomiting [Recovered/Resolved]
  - Intentional product misuse [Unknown]
  - Intentional dose omission [Unknown]
  - Intentional product use issue [Unknown]
  - Therapeutic response prolonged [Unknown]
  - Nausea [Recovered/Resolved]
  - Drug effect decreased [Unknown]
  - Abdominal discomfort [Recovered/Resolved]
